FAERS Safety Report 15326023 (Version 1)
Quarter: 2018Q3

REPORT INFORMATION
  Report Type: Spontaneous
  Country: US (occurrence: US)
  Receive Date: 20180823
  Receipt Date: 20180823
  Transmission Date: 20181010
  Serious: Yes (Other)
  Sender: FDA-Public Use
  Company Number: None

PATIENT
  Age: 4 Year
  Sex: Female
  Weight: 22.05 kg

DRUGS (2)
  1. MIRALAX [Suspect]
     Active Substance: POLYETHYLENE GLYCOL 3350
     Indication: CONSTIPATION
     Route: 048
     Dates: start: 20150815, end: 20170302
  2. PRO/PREBIOTICS [Concomitant]

REACTIONS (9)
  - Mood swings [None]
  - Mental impairment [None]
  - Anger [None]
  - Intentional self-injury [None]
  - Speech disorder [None]
  - Dyskinesia [None]
  - Abnormal behaviour [None]
  - Aggression [None]
  - Tic [None]

NARRATIVE: CASE EVENT DATE: 20170102
